FAERS Safety Report 9162666 (Version 2)
Quarter: 2013Q1

REPORT INFORMATION
  Report Type: Spontaneous
  Country: US (occurrence: None)
  Receive Date: 20130312
  Receipt Date: 20130318
  Transmission Date: 20140127
  Serious: Yes (Death)
  Sender: FDA-Public Use
  Company Number: 2013STPI000076

PATIENT
  Age: 79 Year
  Sex: Male

DRUGS (1)
  1. MATULANE [Suspect]
     Indication: LYMPHOMA
     Route: 048
     Dates: start: 20130125, end: 20130220

REACTIONS (2)
  - Lymphoma [None]
  - Malignant neoplasm progression [None]
